FAERS Safety Report 4776406-8 (Version None)
Quarter: 2005Q3

REPORT INFORMATION
  Report Type: 
  Country: None (occurrence: None)
  Receive Date: 20050921
  Receipt Date: 20050902
  Transmission Date: 20060218
  Serious: Yes (Other)
  Sender: FDA-Public Use
  Company Number: FR_050907064

PATIENT
  Age: 58 Year
  Sex: Female

DRUGS (6)
  1. FORTEO [Suspect]
     Indication: OSTEOPOROSIS
     Dosage: 20 UG/2 DAY
     Dates: start: 20050828, end: 20050828
  2. ACETAMINOPHEN [Concomitant]
  3. ARNICA (ARNICA MONTANA) [Concomitant]
  4. ENDOTELON [Concomitant]
  5. ATORVASTATIN CALCIUM [Concomitant]
  6. DIFRAREL [Concomitant]

REACTIONS (4)
  - FALL [None]
  - INCORRECT DOSE ADMINISTERED [None]
  - LOSS OF CONSCIOUSNESS [None]
  - MALAISE [None]
